FAERS Safety Report 21973122 (Version 6)
Quarter: 2024Q4

REPORT INFORMATION
  Report Type: Spontaneous
  Country: US (occurrence: US)
  Receive Date: 20230209
  Receipt Date: 20241212
  Transmission Date: 20250115
  Serious: Yes (Other)
  Sender: PFIZER
  Company Number: US-PFIZER INC-PV202300025132

PATIENT
  Age: 97 Year
  Sex: Female

DRUGS (3)
  1. IBRANCE [Suspect]
     Active Substance: PALBOCICLIB
     Indication: Breast cancer female
     Dosage: 75 MG, 1 TABLET DAILY ON: 21 DAYS, OFF: 7 DAYS/ALONG WITH LETROZOLE 2.5 MG DAILY FOR A 28 DAY CYCLE.
     Route: 048
  2. LETROZOLE [Concomitant]
     Active Substance: LETROZOLE
     Dosage: 2.5 MG, DAILY FOR A 28 DAY CYCLE
  3. LETROZOLE [Concomitant]
     Active Substance: LETROZOLE
     Dosage: 2.5 MG DAILY FOR A 23 DAY CYCLE

REACTIONS (2)
  - Deafness [Unknown]
  - Full blood count decreased [Unknown]
